FAERS Safety Report 9979469 (Version 1)
Quarter: 2014Q1

REPORT INFORMATION
  Report Type: Report from Study
  Country: US (occurrence: US)
  Receive Date: 20140306
  Receipt Date: 20140306
  Transmission Date: 20141002
  Serious: No
  Sender: FDA-Public Use
  Company Number: US-ABBVIE-13P-163-1172870-00

PATIENT
  Age: 58 Year
  Sex: Female

DRUGS (14)
  1. HUMIRA [Suspect]
     Indication: RHEUMATOID ARTHRITIS
     Dosage: INITIAL DOSE ONLY
     Dates: start: 20131104
  2. SULFASALAZINE [Concomitant]
     Indication: RHEUMATOID ARTHRITIS
  3. KLOR-CON M20 [Concomitant]
     Indication: MINERAL SUPPLEMENTATION
  4. HYDROCHLOROTHIAZIDE [Concomitant]
     Indication: DIURETIC THERAPY
  5. LISINOPRIL [Concomitant]
     Indication: BLOOD PRESSURE
  6. OMEPRAZOLE [Concomitant]
     Indication: GASTRIC BYPASS
  7. OMEPRAZOLE [Concomitant]
     Indication: DYSPEPSIA
  8. LEFLUNOMIDE [Concomitant]
     Indication: RHEUMATOID ARTHRITIS
  9. URSODIOL [Concomitant]
     Indication: GASTRIC BYPASS
  10. LANTUS [Concomitant]
     Indication: DIABETES MELLITUS
     Dosage: AT BEDTIME
  11. HUMALOG [Concomitant]
     Indication: DIABETES MELLITUS
     Dosage: SLUDUBG SCALE
  12. MULTIVITAMIN FOR WOMEN [Concomitant]
     Indication: VITAMIN SUPPLEMENTATION
  13. BIOTIN [Concomitant]
     Indication: VITAMIN SUPPLEMENTATION
  14. CALCIUM CITRATE WITH VITAMIN D3 [Concomitant]
     Indication: MINERAL SUPPLEMENTATION

REACTIONS (6)
  - Oropharyngeal pain [Recovering/Resolving]
  - Obesity [Unknown]
  - Malaise [Recovering/Resolving]
  - Rhinorrhoea [Unknown]
  - Bronchitis [Recovering/Resolving]
  - Pain in extremity [Unknown]
